FAERS Safety Report 17578242 (Version 2)
Quarter: 2020Q1

REPORT INFORMATION
  Report Type: Report from Study
  Country: US (occurrence: US)
  Receive Date: 20200324
  Receipt Date: 20200325
  Transmission Date: 20200409
  Serious: Yes (Other)
  Sender: FDA-Public Use
  Company Number: US-009507513-1911USA007315

PATIENT
  Age: 70 Year
  Sex: Female
  Weight: 81.6 kg

DRUGS (2)
  1. INCB050465 [Suspect]
     Active Substance: PARSACLISIB HYDROCHLORIDE
     Indication: NON-SMALL CELL LUNG CANCER
     Dosage: 0.3 MILLIGRAM, QD
     Route: 048
     Dates: start: 20190319, end: 20191209
  2. PEMBROLIZUMAB. [Suspect]
     Active Substance: PEMBROLIZUMAB
     Indication: NON-SMALL CELL LUNG CANCER
     Dosage: 200 MILLIGRAM, Q3 WEEKS
     Route: 042
     Dates: start: 20190319, end: 20191209

REACTIONS (1)
  - Pancreatitis chronic [Not Recovered/Not Resolved]

NARRATIVE: CASE EVENT DATE: 20191111
